FAERS Safety Report 22300477 (Version 2)
Quarter: 2023Q2

REPORT INFORMATION
  Report Type: Spontaneous
  Country: None (occurrence: ES)
  Receive Date: 20230509
  Receipt Date: 20230516
  Transmission Date: 20230721
  Serious: Yes (Life-Threatening, Hospitalization, Other)
  Sender: FDA-Public Use
  Company Number: ES-Ascend Therapeutics US, LLC-2141293

PATIENT
  Age: 43 Year
  Sex: Female

DRUGS (7)
  1. ESTROGEL [Suspect]
     Active Substance: ESTRADIOL
     Indication: Primary hypogonadism
     Route: 065
  2. ESTRADIOL [Suspect]
     Active Substance: ESTRADIOL
     Route: 048
  3. HYDROCORTISONE [Suspect]
     Active Substance: HYDROCORTISONE
     Route: 048
  4. NORETHINDRONE [Suspect]
     Active Substance: NORETHINDRONE
     Route: 048
  5. FLUDROCORTISONE [Suspect]
     Active Substance: FLUDROCORTISONE
     Route: 048
  6. MITOTANE [Suspect]
     Active Substance: MITOTANE
     Route: 065
  7. ESTRADIOL [Suspect]
     Active Substance: ESTRADIOL
     Route: 048

REACTIONS (5)
  - Peliosis hepatis [Recovered/Resolved]
  - Hepatic rupture [Recovered/Resolved]
  - Anaemia [Recovered/Resolved]
  - Hypovolaemic shock [Recovered/Resolved]
  - Hepatic ischaemia [Recovered/Resolved]
